FAERS Safety Report 12674215 (Version 1)
Quarter: 2016Q3

REPORT INFORMATION
  Report Type: Spontaneous
  Country: US (occurrence: US)
  Receive Date: 20160822
  Receipt Date: 20160822
  Transmission Date: 20161109
  Serious: Yes (Hospitalization, Other)
  Sender: FDA-Public Use
  Company Number: US-GLAXOSMITHKLINE-US2016GSK120424

PATIENT
  Age: 70 Year
  Sex: Male

DRUGS (18)
  1. TADALAFIL [Concomitant]
     Active Substance: TADALAFIL
  2. PRILOSEC [Concomitant]
     Active Substance: OMEPRAZOLE MAGNESIUM
  3. PRESERVISION [Concomitant]
     Active Substance: MINERALS\VITAMINS
  4. ALBUTEROL. [Concomitant]
     Active Substance: ALBUTEROL
  5. LOSARTAN POTASSIUM. [Concomitant]
     Active Substance: LOSARTAN POTASSIUM
  6. GABAPENTIN. [Concomitant]
     Active Substance: GABAPENTIN
  7. NOVOLOG [Concomitant]
     Active Substance: INSULIN ASPART
  8. GLIMEPIRIDE + ROSIGLITAZONE [Concomitant]
     Active Substance: GLIMEPIRIDE\ROSIGLITAZONE MALEATE
  9. METOPROLOL TARTRATE. [Concomitant]
     Active Substance: METOPROLOL TARTRATE
  10. VITAMIN D3 [Concomitant]
     Active Substance: CHOLECALCIFEROL
  11. TANZEUM [Suspect]
     Active Substance: ALBIGLUTIDE
     Dosage: 50 MG, WE
     Route: 058
     Dates: start: 20160613
  12. PRAVASTATIN. [Concomitant]
     Active Substance: PRAVASTATIN
  13. ASPIRIN. [Concomitant]
     Active Substance: ASPIRIN
  14. ISOSORBIDE. [Concomitant]
     Active Substance: ISOSORBIDE
  15. FUROSEMIDE. [Concomitant]
     Active Substance: FUROSEMIDE
  16. LANTUS [Concomitant]
     Active Substance: INSULIN GLARGINE
  17. ALLOPURINOL. [Concomitant]
     Active Substance: ALLOPURINOL
  18. POTASSIUM CHLORIDE. [Concomitant]
     Active Substance: POTASSIUM CHLORIDE

REACTIONS (4)
  - Angina pectoris [Unknown]
  - Cataract operation [Unknown]
  - Chest discomfort [Unknown]
  - Acute kidney injury [Recovered/Resolved]

NARRATIVE: CASE EVENT DATE: 20160726
